FAERS Safety Report 5682778-2 (Version None)
Quarter: 2008Q1

REPORT INFORMATION
  Report Type: 
  Country: None (occurrence: None)
  Receive Date: 20080327
  Receipt Date: 20080313
  Transmission Date: 20080703
  Serious: Yes (Hospitalization)
  Sender: FDA-Public Use
  Company Number: GB-ROCHE-553440

PATIENT
  Age: 65 Year
  Sex: Female
  Weight: 89 kg

DRUGS (2)
  1. XENICAL [Suspect]
     Indication: OBESITY
     Route: 048
     Dates: start: 20070918, end: 20071201
  2. UNSPECIFIED MEDICATION [Concomitant]

REACTIONS (4)
  - BILIARY COLIC [None]
  - CHOLELITHIASIS [None]
  - GASTROENTERITIS [None]
  - HEADACHE [None]
